FAERS Safety Report 9743028 (Version 3)
Quarter: 2014Q4

REPORT INFORMATION
  Report Type: Spontaneous
  Country: US (occurrence: US)
  Receive Date: 20131210
  Receipt Date: 20141114
  Transmission Date: 20150529
  Serious: Yes (Hospitalization)
  Sender: FDA-Public Use
  Company Number: US-BAYER-2013-150461

PATIENT
  Age: 27 Year
  Sex: Female
  Weight: 98 kg

DRUGS (5)
  1. YAZ [Suspect]
     Active Substance: DROSPIRENONE\ETHINYL ESTRADIOL
     Indication: CONTRACEPTION
     Dosage: UNK
     Route: 048
     Dates: start: 1997, end: 2011
  2. GLUMETZA [Concomitant]
     Active Substance: METFORMIN HYDROCHLORIDE
  3. VITAMIN D3 [Concomitant]
     Active Substance: CHOLECALCIFEROL
  4. OCELLA [Suspect]
     Active Substance: DROSPIRENONE\ETHINYL ESTRADIOL
     Indication: CONTRACEPTION
     Dosage: UNK
     Route: 048
     Dates: start: 1997, end: 2011
  5. SYNTHROID [Concomitant]
     Active Substance: LEVOTHYROXINE SODIUM
     Indication: HYPOTHYROIDISM
     Dosage: 1 PER DAY, DOSE NOT SPECIFIED
     Dates: start: 2000

REACTIONS (5)
  - Pain [None]
  - Pulmonary embolism [None]
  - Thrombosis [None]
  - Deep vein thrombosis [None]
  - Injury [None]

NARRATIVE: CASE EVENT DATE: 201108
